FAERS Safety Report 18948668 (Version 2)
Quarter: 2021Q1

REPORT INFORMATION
  Report Type: Spontaneous
  Country: US (occurrence: US)
  Receive Date: 20210227
  Receipt Date: 20210310
  Transmission Date: 20210420
  Serious: No
  Sender: FDA-Public Use
  Company Number: US-IPSEN BIOPHARMACEUTICALS, INC.-2021-04936

PATIENT
  Age: 66 Year
  Sex: Female

DRUGS (4)
  1. DYSPORT [Suspect]
     Active Substance: ABOBOTULINUMTOXINA
     Indication: SKIN WRINKLING
  2. DYSPORT [Suspect]
     Active Substance: ABOBOTULINUMTOXINA
     Indication: OFF LABEL USE
  3. DYSPORT [Suspect]
     Active Substance: ABOBOTULINUMTOXINA
     Indication: SKIN WRINKLING
     Dosage: 108 IU 60 U (PRESCRIBED OVERDOSE) , FRONTALIS (18 U) AND ORBICULARIS OCULI (18 U PER SIDE 36 U)
     Route: 065
     Dates: start: 20210208, end: 20210208
  4. DYSPORT [Suspect]
     Active Substance: ABOBOTULINUMTOXINA
     Indication: SKIN WRINKLING

REACTIONS (5)
  - Product preparation error [Unknown]
  - Prescribed overdose [Unknown]
  - Drug ineffective [Unknown]
  - Periorbital swelling [Not Recovered/Not Resolved]
  - Off label use [Unknown]

NARRATIVE: CASE EVENT DATE: 20210208
